FAERS Safety Report 17843568 (Version 4)
Quarter: 2022Q4

REPORT INFORMATION
  Report Type: Report from Study
  Country: ES (occurrence: ES)
  Receive Date: 20200531
  Receipt Date: 20221205
  Transmission Date: 20230113
  Serious: Yes (Death, Other)
  Sender: FDA-Public Use
  Company Number: ES-BOEHRINGERINGELHEIM-2020-BI-026829

PATIENT
  Age: 81 Year
  Sex: Male

DRUGS (1)
  1. PRAXBIND [Suspect]
     Active Substance: IDARUCIZUMAB
     Indication: Procoagulant therapy
     Route: 065

REACTIONS (2)
  - Metastatic carcinoma of the bladder [Fatal]
  - Acute kidney injury [Fatal]
